FAERS Safety Report 9773533 (Version 4)
Quarter: 2014Q1

REPORT INFORMATION
  Report Type: Report from Study
  Country: DE (occurrence: DE)
  Receive Date: 20131219
  Receipt Date: 20140314
  Transmission Date: 20141002
  Serious: Yes (Death, Life-Threatening, Hospitalization, Other)
  Sender: FDA-Public Use
  Company Number: DE-EXELIXIS-XL18413003736

PATIENT
  Age: 72 Year
  Sex: Male
  Weight: 75.5 kg

DRUGS (13)
  1. XL184 [Suspect]
     Indication: PROSTATE CANCER
     Dosage: 60 MG, QD
     Route: 048
     Dates: start: 20130710, end: 2013
  2. XL184 [Suspect]
     Dosage: 20 MG, QD
     Route: 048
     Dates: start: 2013, end: 20131001
  3. XL184 [Suspect]
     Indication: PROSTATE CANCER
     Dosage: 5 MG, BID
     Route: 048
     Dates: start: 20130710, end: 20131002
  4. ASS [Concomitant]
  5. NEBIVOLOL [Concomitant]
  6. ZOMETA [Concomitant]
  7. PANTOPRAZOL [Concomitant]
  8. TORASEMID [Concomitant]
  9. SIMVASTAD [Concomitant]
  10. TRENANTONE [Concomitant]
  11. NOVAMINOSULFON [Concomitant]
  12. FUROSEMIDE [Concomitant]
  13. RAMIPRIL [Concomitant]

REACTIONS (4)
  - Cardiac failure [Not Recovered/Not Resolved]
  - Pneumonia aspiration [Fatal]
  - Sepsis [Not Recovered/Not Resolved]
  - Ischaemic stroke [Not Recovered/Not Resolved]
